FAERS Safety Report 5015059-0 (Version None)
Quarter: 2006Q2

REPORT INFORMATION
  Report Type: 
  Country: None (occurrence: None)
  Receive Date: 20060530
  Receipt Date: 20060523
  Transmission Date: 20061013
  Serious: Yes (Other)
  Sender: FDA-Public Use
  Company Number: 2006-05-1957

PATIENT
  Age: 4 Year
  Sex: Male

DRUGS (1)
  1. AERIUS (DESLORATADINE) [Suspect]

REACTIONS (4)
  - CHEST PAIN [None]
  - HALLUCINATION [None]
  - NAUSEA [None]
  - TACHYCARDIA [None]
